FAERS Safety Report 11510319 (Version 1)
Quarter: 2015Q3

REPORT INFORMATION
  Report Type: Spontaneous
  Country: US (occurrence: US)
  Receive Date: 20150915
  Receipt Date: 20150915
  Transmission Date: 20151125
  Serious: No
  Sender: FDA-Public Use
  Company Number: US-JNJFOC-20150200059

PATIENT
  Age: 71 Year
  Sex: Female
  Weight: 68.04 kg

DRUGS (2)
  1. VISINE L.R. [Suspect]
     Active Substance: OXYMETAZOLINE HYDROCHLORIDE
     Route: 047
  2. VISINE L.R. [Suspect]
     Active Substance: OXYMETAZOLINE HYDROCHLORIDE
     Indication: EYE DISORDER
     Dosage: 2 DROPS PER EYE
     Route: 047

REACTIONS (2)
  - Therapeutic response unexpected [Unknown]
  - Product use issue [Unknown]
